FAERS Safety Report 24122859 (Version 1)
Quarter: 2024Q3

REPORT INFORMATION
  Report Type: Spontaneous
  Country: PL (occurrence: PL)
  Receive Date: 20240723
  Receipt Date: 20240723
  Transmission Date: 20241016
  Serious: Yes (Death)
  Sender: JOHNSON AND JOHNSON
  Company Number: None

PATIENT
  Age: 50 Year
  Sex: Female
  Weight: 58 kg

DRUGS (3)
  1. VELCADE [Suspect]
     Active Substance: BORTEZOMIB
     Indication: Plasma cell myeloma
     Dosage: DOSING ACCORDING TO THE  DVTD REGIMEN
     Route: 042
     Dates: start: 20240326, end: 20240703
  2. DARZALEX [Suspect]
     Active Substance: DARATUMUMAB
     Indication: Plasma cell myeloma
     Dosage: CLINICAL TRIAL 54767414NAP4001; TOTAL: 11 DRUG ADMINISTRATIONS
     Route: 042
     Dates: start: 20240326, end: 20240703
  3. PROLIA [Suspect]
     Active Substance: DENOSUMAB
     Indication: Plasma cell myeloma
     Dosage: DOSE UNKNOWN; THE DRUG WAS PROBABLY ADMINISTERED ONCE
     Route: 065
     Dates: start: 20240507, end: 20240507

REACTIONS (5)
  - Diverticular perforation [Fatal]
  - Acute respiratory distress syndrome [Fatal]
  - Pneumonia [Fatal]
  - Thrombocytopenia [Fatal]
  - Abdominal abscess [Fatal]

NARRATIVE: CASE EVENT DATE: 20240705
